FAERS Safety Report 7171586 (Version 2)
Quarter: 2020Q3

REPORT INFORMATION
  Report Type: Report from Study
  Country: US (occurrence: US)
  Receive Date: 20091110
  Receipt Date: 20120125
  Transmission Date: 20201104
  Serious: Yes (Other)
  Sender: FDA-Public Use
  Company Number: US-JNJFOC-20061103751

PATIENT
  Age: 58 Year
  Sex: Male
  Weight: 74.5 kg

DRUGS (18)
  1. LIPITOR [Concomitant]
     Active Substance: ATORVASTATIN CALCIUM
     Route: 048
     Dates: start: 20050731
  2. ASA [Concomitant]
     Active Substance: ASPIRIN
     Route: 048
     Dates: start: 20050731
  3. PLACEBO [Suspect]
     Active Substance: UNSPECIFIED INGREDIENT
     Route: 058
     Dates: start: 20060202
  4. NIASPAN [Concomitant]
     Active Substance: NIACIN
     Route: 048
     Dates: start: 20050731
  5. HALCION [Concomitant]
     Active Substance: TRIAZOLAM
     Route: 048
     Dates: start: 2000
  6. PLACEBO [Suspect]
     Active Substance: UNSPECIFIED INGREDIENT
     Route: 058
     Dates: start: 20060330
  7. GOLIMUMAB [Suspect]
     Active Substance: GOLIMUMAB
     Indication: PSORIATIC ARTHROPATHY
     Dosage: WEEK 24
     Route: 058
     Dates: start: 20060721
  8. GOLIMUMAB [Suspect]
     Active Substance: GOLIMUMAB
     Dosage: WEEK 28
     Route: 058
     Dates: start: 20060821
  9. PLACEBO [Suspect]
     Active Substance: UNSPECIFIED INGREDIENT
     Route: 058
     Dates: start: 20060306
  10. PLAVIX [Concomitant]
     Active Substance: CLOPIDOGREL BISULFATE
     Route: 048
     Dates: start: 20050731
  11. FISH OIL [Concomitant]
     Active Substance: FISH OIL
     Route: 048
     Dates: start: 20050731
  12. GOLIMUMAB [Suspect]
     Active Substance: GOLIMUMAB
     Dosage: WEEK 32
     Route: 058
     Dates: start: 20060915
  13. TENORMIN [Concomitant]
     Active Substance: ATENOLOL
     Route: 048
     Dates: start: 20050731
  14. GOLIMUMAB [Suspect]
     Active Substance: GOLIMUMAB
     Dosage: WEEK 20
     Route: 058
     Dates: start: 20060622
  15. GOLIMUMAB [Suspect]
     Active Substance: GOLIMUMAB
     Dosage: WEEK 16
     Route: 058
     Dates: start: 20060525
  16. GOLIMUMAB [Suspect]
     Active Substance: GOLIMUMAB
     Dosage: WEEK 36
     Route: 058
     Dates: start: 20061016
  17. PLACEBO [Suspect]
     Active Substance: UNSPECIFIED INGREDIENT
     Indication: PSORIATIC ARTHROPATHY
     Route: 058
     Dates: start: 20060428
  18. ZESTRIL [Concomitant]
     Active Substance: LISINOPRIL
     Route: 048
     Dates: start: 20050731

REACTIONS (1)
  - Colon cancer [Recovered/Resolved]

NARRATIVE: CASE EVENT DATE: 20061027
